FAERS Safety Report 14381804 (Version 1)
Quarter: 2018Q1

REPORT INFORMATION
  Report Type: Spontaneous
  Country: US (occurrence: US)
  Receive Date: 20180111
  Receipt Date: 20180111
  Transmission Date: 20180509
  Serious: Yes (Disabling)
  Sender: FDA-Public Use
  Company Number: None

PATIENT
  Weight: 112.5 kg

DRUGS (7)
  1. ZYPREXA [Concomitant]
     Active Substance: OLANZAPINE
  2. VITAMIN C [Concomitant]
     Active Substance: ASCORBIC ACID
  3. MENS MULTIVITAMIN [Concomitant]
  4. FISH OIL [Concomitant]
     Active Substance: FISH OIL
  5. CALCIUM [Concomitant]
     Active Substance: CALCIUM
  6. TENEX [Concomitant]
     Active Substance: GUANFACINE HYDROCHLORIDE
  7. METHYLPHENIDATE HCL ER [Suspect]
     Active Substance: METHYLPHENIDATE HYDROCHLORIDE
     Indication: ATTENTION DEFICIT/HYPERACTIVITY DISORDER
     Dosage: ?          QUANTITY:1 TABLET(S);?
     Route: 048
     Dates: start: 20171219, end: 20180111

REACTIONS (3)
  - Product substitution issue [None]
  - Disturbance in attention [None]
  - Drug ineffective [None]

NARRATIVE: CASE EVENT DATE: 20171219
